FAERS Safety Report 18595149 (Version 1)
Quarter: 2020Q4

REPORT INFORMATION
  Report Type: Report from Study
  Country: ZA (occurrence: ZA)
  Receive Date: 20201209
  Receipt Date: 20201209
  Transmission Date: 20210114
  Serious: Yes (Death, Life-Threatening, Hospitalization)
  Sender: FDA-Public Use
  Company Number: ZA-AMGEN LTD-ZAFSL2020199048

PATIENT
  Age: 64 Year
  Sex: Female

DRUGS (1)
  1. ARANESP [Suspect]
     Active Substance: DARBEPOETIN ALFA
     Indication: CHRONIC KIDNEY DISEASE
     Dosage: 40 MICROGRAM, QWK
     Route: 058
     Dates: start: 20201016, end: 20201108

REACTIONS (2)
  - Fluid overload [Fatal]
  - Cardiac disorder [Fatal]

NARRATIVE: CASE EVENT DATE: 2020
